FAERS Safety Report 15829721 (Version 1)
Quarter: 2019Q1

REPORT INFORMATION
  Report Type: Spontaneous
  Country: US (occurrence: US)
  Receive Date: 20190115
  Receipt Date: 20190115
  Transmission Date: 20190417
  Serious: No
  Sender: FDA-Public Use
  Company Number: US-ALLERGAN-1850580US

PATIENT
  Age: 67 Year
  Sex: Female
  Weight: 65.76 kg

DRUGS (6)
  1. RESTASIS [Suspect]
     Active Substance: CYCLOSPORINE
     Indication: EYE ALLERGY
  2. LISINOPRIL. [Concomitant]
     Active Substance: LISINOPRIL
     Indication: HYPERTENSION
     Route: 048
  3. RESTASIS [Suspect]
     Active Substance: CYCLOSPORINE
     Indication: DRY EYE
     Dosage: 2 GTT, BID ONCE IN AM AND PM
     Route: 047
     Dates: start: 20180912
  4. ADVAIR HFA [Concomitant]
     Active Substance: FLUTICASONE PROPIONATE\SALMETEROL XINAFOATE
     Indication: ASTHMA
     Dosage: UNK, QD
     Route: 055
  5. RESTASIS [Suspect]
     Active Substance: CYCLOSPORINE
     Indication: CORNEAL REFLEX DECREASED
  6. LAVALO [Concomitant]
     Indication: BLOOD CHOLESTEROL
     Route: 048

REACTIONS (5)
  - Accidental exposure to product [Unknown]
  - Intentional dose omission [Unknown]
  - Incorrect dose administered by product [Unknown]
  - Off label use [Unknown]
  - Product container issue [Unknown]

NARRATIVE: CASE EVENT DATE: 201809
